FAERS Safety Report 7073608-5 (Version None)
Quarter: 2010Q4

REPORT INFORMATION
  Report Type: 
  Country: None (occurrence: None)
  Receive Date: 20101029
  Receipt Date: 20100901
  Transmission Date: 20110411
  Serious: No
  Sender: FDA-Public Use
  Company Number: A0870815A

PATIENT
  Age: 89 Year
  Sex: Female

DRUGS (6)
  1. ADVAIR DISKUS 100/50 [Suspect]
     Indication: ASTHMA
     Route: 055
  2. SPIRIVA [Concomitant]
  3. VITAMIN D SUPPLEMENT [Concomitant]
  4. IRON SUPPLEMENT [Concomitant]
  5. OMEPRAZOLE [Concomitant]
  6. NITROGLYCERIN [Concomitant]

REACTIONS (3)
  - DRUG INEFFECTIVE [None]
  - DYSPNOEA [None]
  - PRODUCT QUALITY ISSUE [None]
